FAERS Safety Report 16240181 (Version 10)
Quarter: 2021Q4

REPORT INFORMATION
  Report Type: Report from Study
  Country: None (occurrence: JP)
  Receive Date: 20190425
  Receipt Date: 20211018
  Transmission Date: 20220304
  Serious: Yes (Hospitalization, Other)
  Sender: FDA-Public Use
  Company Number: JP-KYOWAKIRIN-2019AKK005761AA

PATIENT
  Age: 52 Year
  Sex: Male

DRUGS (15)
  1. BRODALUMAB [Suspect]
     Active Substance: BRODALUMAB
     Indication: Psoriasis
     Dosage: 210 MG/1.5 ML, WEEKLY FOR WEEK 0, 1, AND 2, AND THEN EVERY OTHER WEEK
     Route: 058
     Dates: start: 20180302, end: 20180316
  2. BRODALUMAB [Suspect]
     Active Substance: BRODALUMAB
     Dosage: 210 MG/1.5 ML, WEEKLY FOR WEEK 0, 1, AND 2, AND THEN EVERY OTHER WEEK, DURATION: 2 MONTHS 10 DAYS
     Route: 058
     Dates: start: 20180330, end: 20180608
  3. BRODALUMAB [Suspect]
     Active Substance: BRODALUMAB
     Dosage: SYRINGE, SINGLE
     Route: 058
     Dates: start: 20180618, end: 20180618
  4. BETAMETHASONE DIPROPIONATE [Concomitant]
     Active Substance: BETAMETHASONE DIPROPIONATE
     Indication: Product used for unknown indication
     Route: 065
  5. BETAMETHASONE DIPROPIONATE [Concomitant]
     Active Substance: BETAMETHASONE DIPROPIONATE
     Dosage: LOTION (EXCEPT LOTION FOR EYE)
     Route: 065
  6. OXAROL [Concomitant]
     Active Substance: MAXACALCITOL
     Indication: Product used for unknown indication
     Route: 065
  7. PREDNISOLONE VALERATE ACETATE [Concomitant]
     Active Substance: PREDNISOLONE VALERATE ACETATE
     Indication: Product used for unknown indication
     Dosage: EXTERNAL USE
  8. AMLODIPINE [Concomitant]
     Active Substance: AMLODIPINE BESYLATE
     Indication: Product used for unknown indication
  9. OLMESARTAN [Concomitant]
     Active Substance: OLMESARTAN
     Indication: Product used for unknown indication
  10. PREDONINE [Concomitant]
     Active Substance: PREDNISOLONE
     Indication: Product used for unknown indication
     Route: 065
     Dates: start: 20180622
  11. SULFAMETHOXAZOLE\TRIMETHOPRIM [Concomitant]
     Active Substance: SULFAMETHOXAZOLE\TRIMETHOPRIM
     Indication: Product used for unknown indication
     Dosage: UNSPECIFIED FORM
     Route: 048
     Dates: start: 20180625
  12. LANSOPRAZOLE [Concomitant]
     Active Substance: LANSOPRAZOLE
     Indication: Product used for unknown indication
     Dosage: UNSPECIFIED FORM
     Route: 048
     Dates: start: 20180605
  13. ACTONEL [Concomitant]
     Active Substance: RISEDRONATE SODIUM
     Indication: Product used for unknown indication
     Route: 065
     Dates: start: 20180724
  14. PREDNISOLONE [Concomitant]
     Active Substance: PREDNISOLONE
     Indication: Product used for unknown indication
     Dosage: UNSPECIFIED FORM
     Route: 048
     Dates: start: 20180720
  15. URSO [Concomitant]
     Active Substance: URSODIOL
     Indication: Product used for unknown indication
     Dosage: UNSPECIFIED FORM
     Route: 048
     Dates: start: 20190705

REACTIONS (3)
  - Pustular psoriasis [Unknown]
  - Cellulitis [Recovering/Resolving]
  - Cellulitis [Recovering/Resolving]

NARRATIVE: CASE EVENT DATE: 20180530
